FAERS Safety Report 21570297 (Version 4)
Quarter: 2022Q4

REPORT INFORMATION
  Report Type: Spontaneous
  Country: US (occurrence: US)
  Receive Date: 20221109
  Receipt Date: 20221216
  Transmission Date: 20230113
  Serious: No
  Sender: FDA-Public Use
  Company Number: US-UNITED THERAPEUTICS-UNT-2022-026041

PATIENT
  Sex: Female
  Weight: 102.04 kg

DRUGS (8)
  1. REMODULIN [Suspect]
     Active Substance: TREPROSTINIL
     Indication: Pulmonary arterial hypertension
     Dosage: UNK, CONTINUING
     Route: 058
     Dates: start: 20221019
  2. REMODULIN [Suspect]
     Active Substance: TREPROSTINIL
     Dosage: 0.00265 ?G/KG (PHARMACY PRE-FILLED WITH 1.8ML PER CASSETTE AT PUMP RATE OF 16 MCL/HR), CONTINUING
     Route: 058
     Dates: start: 202210
  3. REMODULIN [Suspect]
     Active Substance: TREPROSTINIL
     Dosage: 0.00375 ?G/KG (PHARMACY PRE-FILLED WITH 2.8ML PER CASSETTE AT PUMP RATE OF 23 MCL/HR), CONTINUING
     Route: 058
     Dates: start: 2022
  4. REMODULIN [Suspect]
     Active Substance: TREPROSTINIL
     Indication: Pulmonary arterial hypertension
     Dosage: 0.00775 ?G/KG, CONTINUING (PHARMACY FILLED 2.4ML PER CASSETTE; PUMP RATE 19MCL PER HOUR)
     Route: 058
     Dates: start: 2022
  5. REMODULIN [Suspect]
     Active Substance: TREPROSTINIL
     Dosage: 0.01025 ?G/KG (PHARMACY FILL WITH 2.6ML PER CASSETTE AT A PUMP RATE OF 25MCL PER HOUR), CONTINUING
     Route: 058
     Dates: start: 2022
  6. OPSUMIT [Concomitant]
     Active Substance: MACITENTAN
     Indication: Product used for unknown indication
     Dosage: UNK
     Route: 065
  7. SILDENAFIL [Concomitant]
     Active Substance: SILDENAFIL
     Indication: Product used for unknown indication
     Dosage: UNK
     Route: 065
  8. AMLODIPINE [Concomitant]
     Active Substance: AMLODIPINE BESYLATE
     Indication: Product used for unknown indication
     Dosage: UNK
     Route: 065

REACTIONS (6)
  - Nasal congestion [Unknown]
  - Dyspnoea [Unknown]
  - Infusion site haemorrhage [Unknown]
  - Device maintenance issue [Unknown]
  - Infusion site erythema [Unknown]
  - Infusion site swelling [Unknown]

NARRATIVE: CASE EVENT DATE: 20220101
